FAERS Safety Report 5504870-5 (Version None)
Quarter: 2007Q4

REPORT INFORMATION
  Report Type: 
  Country: None (occurrence: None)
  Receive Date: 20071102
  Receipt Date: 20071029
  Transmission Date: 20080405
  Serious: Yes (Hospitalization)
  Sender: FDA-Public Use
  Company Number: GB-JNJFOC-20071001955

PATIENT
  Age: 36 Year
  Sex: Male

DRUGS (8)
  1. RISPERDAL [Suspect]
     Route: 065
  2. RISPERDAL [Suspect]
     Indication: PSYCHOTIC DISORDER
     Route: 065
  3. EPILIM [Interacting]
     Indication: DRUG USE FOR UNKNOWN INDICATION
     Route: 065
  4. CITALOPRAM HYDROBROMIDE [Concomitant]
     Route: 065
  5. FLUPENTIXOL DECANOATE [Concomitant]
     Indication: PSYCHOTIC DISORDER
     Route: 030
  6. OLANZAPINE [Concomitant]
     Indication: PSYCHOTIC DISORDER
     Route: 065
  7. PROCYCLIDINE HYDROCHLORIDE 2MG TAB [Concomitant]
     Route: 065
  8. TEMAZEPAM [Concomitant]
     Route: 065

REACTIONS (10)
  - ANAEMIA MACROCYTIC [None]
  - CONFUSIONAL STATE [None]
  - DRUG INTERACTION [None]
  - DRUG LEVEL INCREASED [None]
  - FALL [None]
  - HYPONATRAEMIA [None]
  - HYPOTENSION [None]
  - PANCYTOPENIA [None]
  - THROMBOCYTOPENIA [None]
  - WHITE BLOOD CELL COUNT DECREASED [None]
